FAERS Safety Report 18970645 (Version 3)
Quarter: 2021Q2

REPORT INFORMATION
  Report Type: Spontaneous
  Country: US (occurrence: US)
  Receive Date: 20210304
  Receipt Date: 20210423
  Transmission Date: 20210717
  Serious: No
  Sender: FDA-Public Use
  Company Number: US-BAUSCH-BL-2021-005192

PATIENT
  Age: 76 Year
  Sex: Male
  Weight: 53.57 kg

DRUGS (6)
  1. CETIRIZINE [Concomitant]
     Active Substance: CETIRIZINE HYDROCHLORIDE
     Indication: PRODUCT USED FOR UNKNOWN INDICATION
  2. CREON [Concomitant]
     Active Substance: PANCRELIPASE AMYLASE\PANCRELIPASE LIPASE\PANCRELIPASE PROTEASE
     Indication: PANCREATIC DISORDER
  3. JUBLIA [Suspect]
     Active Substance: EFINACONAZOLE
     Route: 061
     Dates: start: 2021
  4. PEPSIN [Concomitant]
     Active Substance: PEPSIN
     Indication: PRODUCT USED FOR UNKNOWN INDICATION
  5. ATORVASTATIN [Concomitant]
     Active Substance: ATORVASTATIN
     Indication: PRODUCT USED FOR UNKNOWN INDICATION
  6. JUBLIA [Suspect]
     Active Substance: EFINACONAZOLE
     Indication: ONYCHOMYCOSIS
     Dosage: STARTED ABOUT 1.5 TO 2 YEARS AGO. USED ON TOE NAILS OF LEFT FOOT.
     Route: 061
     Dates: start: 2019, end: 202012

REACTIONS (6)
  - Onychomycosis [Not Recovered/Not Resolved]
  - Patient dissatisfaction with treatment [Unknown]
  - Product container issue [Unknown]
  - Product packaging issue [Unknown]
  - Disease recurrence [Not Recovered/Not Resolved]
  - Product use issue [Unknown]
